FAERS Safety Report 11893890 (Version 1)
Quarter: 2016Q1

REPORT INFORMATION
  Report Type: Spontaneous
  Country: US (occurrence: US)
  Receive Date: 20160107
  Receipt Date: 20160107
  Transmission Date: 20160526
  Serious: Yes (Hospitalization, Other)
  Sender: FDA-Public Use
  Company Number: US-ROCHE-1689817

PATIENT
  Age: 53 Year
  Sex: Male

DRUGS (9)
  1. RITUXIMAB [Suspect]
     Active Substance: RITUXIMAB
     Indication: B-CELL TYPE ACUTE LEUKAEMIA
     Route: 065
     Dates: start: 201407, end: 201412
  2. CYTARABINE. [Suspect]
     Active Substance: CYTARABINE
     Indication: B-CELL TYPE ACUTE LEUKAEMIA
     Route: 065
     Dates: start: 201407, end: 201412
  3. ETOPOSIDE. [Concomitant]
     Active Substance: ETOPOSIDE
  4. CLOFARABINE [Concomitant]
     Active Substance: CLOFARABINE
  5. VINCRISTINE [Concomitant]
     Active Substance: VINCRISTINE
  6. PEG/L-ASPARAGINASE [Concomitant]
     Active Substance: PEGASPARGASE
  7. PREDNISONE. [Concomitant]
     Active Substance: PREDNISONE
  8. BLINATUMOMAB [Concomitant]
     Active Substance: BLINATUMOMAB
     Route: 065
     Dates: start: 201505, end: 201508
  9. METHOTREXATE [Concomitant]
     Active Substance: METHOTREXATE
     Route: 065
     Dates: start: 201407

REACTIONS (9)
  - Escherichia sepsis [Unknown]
  - Coagulopathy [Unknown]
  - Meningitis bacterial [Unknown]
  - Back pain [Unknown]
  - Vomiting [Unknown]
  - Jaundice [Unknown]
  - Pneumonia fungal [Unknown]
  - Blood glucose increased [Unknown]
  - Nausea [Unknown]

NARRATIVE: CASE EVENT DATE: 201508
